FAERS Safety Report 6161428-5 (Version None)
Quarter: 2009Q2

REPORT INFORMATION
  Report Type: 
  Country: None (occurrence: None)
  Receive Date: 20090421
  Receipt Date: 20071119
  Transmission Date: 20091009
  Serious: Yes (Death, Other)
  Sender: FDA-Public Use
  Company Number: US-ASTRAZENECA-2006UW23518

PATIENT
  Age: 15716 Day
  Sex: Male
  Weight: 112.9 kg

DRUGS (39)
  1. SEROQUEL [Suspect]
     Dosage: 25 MG  TO 300 MG
     Route: 048
     Dates: start: 20030729
  2. GABITRIL [Concomitant]
  3. EFFEXOR [Concomitant]
  4. LEXAPRO [Concomitant]
  5. NEURONTIN [Concomitant]
  6. ZYPREXA ZYDIS [Concomitant]
  7. ELAXIL [Concomitant]
  8. CORGARD [Concomitant]
  9. PROTONIX [Concomitant]
  10. COLCHICINE [Concomitant]
  11. FUROSEMIDE [Concomitant]
  12. DIAZEPAM [Concomitant]
  13. SPIRONOLACTONE [Concomitant]
  14. NOVOLOG [Concomitant]
  15. ENDOCET [Concomitant]
  16. XIFAXAN [Concomitant]
  17. MUCINEX [Concomitant]
  18. ZOFRAN [Concomitant]
  19. NOVOLIN [Concomitant]
  20. FLOMAX [Concomitant]
  21. BIDEX [Concomitant]
  22. AVINZA [Concomitant]
  23. TEBAMIDE [Concomitant]
  24. AMBIEN [Concomitant]
  25. LORAZEPAM [Concomitant]
  26. LANTUS [Concomitant]
  27. ACETAMINOPHEN AND HYDROCODONE BITARTRATE [Concomitant]
  28. TRAMADOL [Concomitant]
  29. ALBUTEROL [Concomitant]
  30. ENALAPRIL [Concomitant]
  31. DICYCLOMINE [Concomitant]
  32. PAXIL [Concomitant]
  33. GLUCOPHAGE [Concomitant]
  34. AVANDIA [Concomitant]
  35. METHOCARBAMOL [Concomitant]
  36. SYNTHROID [Concomitant]
  37. RANITIDINE [Concomitant]
  38. DICLOFENAC [Concomitant]
  39. CLONAZEPAM [Concomitant]

REACTIONS (14)
  - ABDOMINAL HERNIA [None]
  - ABDOMINAL PAIN [None]
  - BIPOLAR DISORDER [None]
  - DEATH [None]
  - DIABETES MELLITUS [None]
  - DIABETIC COMA [None]
  - DIABETIC KETOACIDOSIS [None]
  - FOOT FRACTURE [None]
  - GASTROOESOPHAGEAL REFLUX DISEASE [None]
  - HEPATITIS B [None]
  - MAJOR DEPRESSION [None]
  - POST-TRAUMATIC STRESS DISORDER [None]
  - SCHIZOAFFECTIVE DISORDER [None]
  - SUICIDAL IDEATION [None]
